FAERS Safety Report 16555912 (Version 1)
Quarter: 2019Q3

REPORT INFORMATION
  Report Type: Spontaneous
  Country: GB (occurrence: GB)
  Receive Date: 20190710
  Receipt Date: 20190710
  Transmission Date: 20191004
  Serious: Yes (Hospitalization)
  Sender: FDA-Public Use
  Company Number: GB-MYLANLABS-2019M1063547

PATIENT
  Age: 59 Year
  Sex: Male

DRUGS (13)
  1. SALBUTAMOL [Suspect]
     Active Substance: ALBUTEROL
     Indication: PRODUCT USED FOR UNKNOWN INDICATION
     Dosage: UNK UNK, PRN  (AS NECESSARY)
  2. FOLIC ACID. [Concomitant]
     Active Substance: FOLIC ACID
     Dosage: 5 MILLIGRAM, QD
  3. BECLOMETHASONE                     /00212601/ [Concomitant]
     Active Substance: BECLOMETHASONE
     Dosage: UNK UNK, PRN
  4. GABAPENTIN. [Concomitant]
     Active Substance: GABAPENTIN
     Dosage: 2100 MILLIGRAM, QD
  5. TANSULOSINA [Concomitant]
     Dosage: 400 MILLIGRAM, QD
  6. FERROUS FUMARATE [Concomitant]
     Active Substance: FERROUS FUMARATE
     Dosage: 120 MILLIGRAM, QD
  7. THIAMINE. [Concomitant]
     Active Substance: THIAMINE
     Dosage: 200 MILLIGRAM, QD
  8. LANSOPRAZOLE. [Concomitant]
     Active Substance: LANSOPRAZOLE
     Dosage: 30 MILLIGRAM, QD
  9. VITAMIN B COMPOUND                 /00003501/ [Concomitant]
     Dosage: 1 OD
  10. BACLOFEN. [Concomitant]
     Active Substance: BACLOFEN
     Dosage: 90 MILLIGRAM, QD
  11. DYSPORT [Suspect]
     Active Substance: ABOBOTULINUMTOXINA
     Indication: MUSCLE SPASTICITY
     Dosage: 1 DOSAGE FORM, CYCLE
     Dates: start: 20190117, end: 20190117
  12. DULOXETINE. [Concomitant]
     Active Substance: DULOXETINE
     Dosage: 60 MILLIGRAM, QD
  13. ENOXAPARIN [Concomitant]
     Active Substance: ENOXAPARIN
     Dosage: 100 MILLIGRAM, QD
     Route: 058

REACTIONS (5)
  - Pyrexia [Recovering/Resolving]
  - Hypotension [Recovering/Resolving]
  - Tachycardia [Recovering/Resolving]
  - Malaise [Recovering/Resolving]
  - Nausea [Recovering/Resolving]

NARRATIVE: CASE EVENT DATE: 201901
